FAERS Safety Report 5657900-4 (Version None)
Quarter: 2008Q1

REPORT INFORMATION
  Report Type: 
  Country: None (occurrence: None)
  Receive Date: 20080310
  Receipt Date: 20080229
  Transmission Date: 20080703
  Serious: Yes (Death, Life-Threatening, Hospitalization)
  Sender: FDA-Public Use
  Company Number: US-GILEAD-2008-0015015

PATIENT
  Sex: Male

DRUGS (8)
  1. LETAIRIS [Suspect]
     Indication: PULMONARY HYPERTENSION
     Route: 048
     Dates: start: 20070716
  2. LASIX [Concomitant]
     Route: 048
     Dates: start: 20030414, end: 20080108
  3. NORVASC [Concomitant]
     Route: 048
  4. ALDACTONE [Concomitant]
     Route: 048
     Dates: start: 20080102, end: 20080108
  5. MICRO-K [Concomitant]
     Route: 048
     Dates: start: 20080102, end: 20080108
  6. LANOXIN [Concomitant]
     Route: 048
  7. ALLOPURINOL [Concomitant]
     Route: 048
     Dates: start: 20030414, end: 20080108
  8. PRILOSEC [Concomitant]
     Route: 048
     Dates: start: 20080102, end: 20080108

REACTIONS (6)
  - GANGRENE [None]
  - HYPOXIA [None]
  - PNEUMONIA [None]
  - RENAL FAILURE [None]
  - RESPIRATORY DISTRESS [None]
  - RIGHT VENTRICULAR FAILURE [None]
